FAERS Safety Report 19495962 (Version 1)
Quarter: 2021Q3

REPORT INFORMATION
  Report Type: Spontaneous
  Country: DE (occurrence: DE)
  Receive Date: 20210706
  Receipt Date: 20210706
  Transmission Date: 20211014
  Serious: Yes (Hospitalization)
  Sender: FDA-Public Use
  Company Number: DE-TEVA-2021-DE-1929837

PATIENT
  Age: 45 Year
  Sex: Female

DRUGS (3)
  1. LEVETIRACETAM. [Concomitant]
     Active Substance: LEVETIRACETAM
     Dosage: 1500 MILLIGRAM DAILY; 1?0?1?0
     Route: 048
  2. METAMIZOL [Concomitant]
     Active Substance: METAMIZOLE SODIUM
     Dosage: 500 MG, IF NECESSARY
     Route: 048
  3. EPIRUBICIN [Suspect]
     Active Substance: EPIRUBICIN
     Dosage: ACCORDING TO THE SCHEME
     Route: 042

REACTIONS (4)
  - General physical health deterioration [Unknown]
  - Loss of consciousness [Unknown]
  - Fall [Unknown]
  - Asthenia [Unknown]
